FAERS Safety Report 5262746-5 (Version None)
Quarter: 2007Q1

REPORT INFORMATION
  Report Type: 
  Country: None (occurrence: None)
  Receive Date: 20070312
  Receipt Date: 20070308
  Transmission Date: 20070707
  Serious: Yes (Hospitalization, Other)
  Sender: FDA-Public Use
  Company Number: US-GLAXOSMITHKLINE-A0630950A

PATIENT
  Age: 33 Year
  Sex: Female
  Weight: 94.5 kg

DRUGS (4)
  1. EPZICOM [Suspect]
     Indication: HIV INFECTION
     Dosage: 1TAB PER DAY
     Route: 048
  2. DILANTIN [Concomitant]
  3. SULFADIAZINE [Concomitant]
  4. UNKNOWN MEDICATION [Concomitant]

REACTIONS (3)
  - ARTHRALGIA [None]
  - PYREXIA [None]
  - SEROSITIS [None]
